FAERS Safety Report 7645846-1 (Version None)
Quarter: 2011Q3

REPORT INFORMATION
  Report Type: 
  Country: None (occurrence: None)
  Receive Date: 20110729
  Receipt Date: 20110718
  Transmission Date: 20111222
  Serious: Yes (Hospitalization)
  Sender: FDA-Public Use
  Company Number: PHHY2011CN66336

PATIENT
  Age: 44 Year
  Sex: Male

DRUGS (5)
  1. CEPHALOSPORINES [Suspect]
     Dosage: UNK
  2. CEFOTAXIME SODIUM [Concomitant]
     Dosage: 3 G, BID
     Route: 041
  3. VALPROATE SODIUM [Concomitant]
     Dosage: 0.2 G, TID
  4. ANALGESICS [Suspect]
     Dosage: UNK
  5. CARBAMAZEPINE [Suspect]
     Indication: EPILEPSY
     Dosage: 0.1 G, TID

REACTIONS (19)
  - PYREXIA [None]
  - OLIGURIA [None]
  - RASH [None]
  - ASPARTATE AMINOTRANSFERASE INCREASED [None]
  - BLOOD LACTATE DEHYDROGENASE INCREASED [None]
  - LYMPHADENOPATHY [None]
  - RASH ERYTHEMATOUS [None]
  - MUCOSAL EROSION [None]
  - ERYTHEMA [None]
  - CONJUNCTIVAL HYPERAEMIA [None]
  - DRUG ERUPTION [None]
  - DIARRHOEA [None]
  - ALANINE AMINOTRANSFERASE INCREASED [None]
  - HEART RATE INCREASED [None]
  - WHEEZING [None]
  - HEPATOMEGALY [None]
  - RALES [None]
  - RASH MACULO-PAPULAR [None]
  - BLOOD URINE PRESENT [None]
